FAERS Safety Report 20327714 (Version 3)
Quarter: 2022Q1

REPORT INFORMATION
  Report Type: Spontaneous
  Country: BR (occurrence: BR)
  Receive Date: 20220112
  Receipt Date: 20220128
  Transmission Date: 20220423
  Serious: Yes (Other)
  Sender: FDA-Public Use
  Company Number: BR-NOVARTISPH-NVSC2022BR003784

PATIENT
  Sex: Male

DRUGS (1)
  1. ZOLPIDEM TARTRATE [Suspect]
     Active Substance: ZOLPIDEM TARTRATE
     Indication: Product used for unknown indication
     Dosage: 3 DOSAGE FORM (10MG 30 FILM COATED TABLET)
     Route: 065

REACTIONS (9)
  - Cerebral disorder [Unknown]
  - Hallucination [Unknown]
  - Drug intolerance [Unknown]
  - Amnesia [Unknown]
  - Speech disorder [Unknown]
  - Nightmare [Unknown]
  - Insomnia [Unknown]
  - Prescription drug used without a prescription [Unknown]
  - Drug ineffective [Unknown]

NARRATIVE: CASE EVENT DATE: 20211107
